FAERS Safety Report 12834201 (Version 1)
Quarter: 2016Q4

REPORT INFORMATION
  Report Type: Spontaneous
  Country: US (occurrence: US)
  Receive Date: 20161010
  Receipt Date: 20161010
  Transmission Date: 20170207
  Serious: Yes (Other)
  Sender: FDA-Public Use
  Company Number: US-HERITAGE PHARMACEUTICALS-2016HTG00245

PATIENT
  Age: 69 Year
  Sex: Female
  Weight: 57.14 kg

DRUGS (5)
  1. VERAPAMIL HYDROCHLORIDE. [Suspect]
     Active Substance: VERAPAMIL HYDROCHLORIDE
     Dosage: 30 MG, 1X/DAY
     Dates: start: 20160910, end: 20160910
  2. VERAPAMIL HYDROCHLORIDE. [Suspect]
     Active Substance: VERAPAMIL HYDROCHLORIDE
     Dosage: 60 MG, 1X/DAY
     Dates: start: 2016
  3. XANAX [Concomitant]
     Active Substance: ALPRAZOLAM
  4. VERAPAMIL HYDROCHLORIDE. [Suspect]
     Active Substance: VERAPAMIL HYDROCHLORIDE
     Indication: HYPERTENSION
     Dosage: 60 MG, 2X/DAY
     Dates: start: 20160829
  5. VERAPAMIL HYDROCHLORIDE. [Suspect]
     Active Substance: VERAPAMIL HYDROCHLORIDE
     Dosage: 60 MG, 1X/DAY
     Dates: start: 20160911

REACTIONS (7)
  - Dizziness [Unknown]
  - Tachycardia [Unknown]
  - Feeling abnormal [Unknown]
  - Tension [Recovered/Resolved]
  - Hypertension [Unknown]
  - Blood pressure decreased [Unknown]
  - Headache [Unknown]

NARRATIVE: CASE EVENT DATE: 2016
